FAERS Safety Report 22216907 (Version 1)
Quarter: 2023Q2

REPORT INFORMATION
  Report Type: Spontaneous
  Country: US (occurrence: US)
  Receive Date: 20230417
  Receipt Date: 20230417
  Transmission Date: 20230721
  Serious: No
  Sender: FDA-Public Use
  Company Number: US-APOTEX-2022AP009193

PATIENT
  Sex: Male

DRUGS (2)
  1. MOMETASONE FUROATE [Suspect]
     Active Substance: MOMETASONE FUROATE
     Indication: Nasal septal operation
     Dosage: 2 DOSAGE FORM, (2 SPRAYS IN EACH NOSTRIL DAILY BEFORE GOING TO BED)
     Route: 045
     Dates: start: 2021
  2. MOMETASONE FUROATE [Suspect]
     Active Substance: MOMETASONE FUROATE
     Indication: Sinus disorder

REACTIONS (4)
  - Product substitution issue [Unknown]
  - Product delivery mechanism issue [Unknown]
  - Packaging design issue [Unknown]
  - Device delivery system issue [Unknown]
